FAERS Safety Report 19546593 (Version 2)
Quarter: 2021Q3

REPORT INFORMATION
  Report Type: Spontaneous
  Country: US (occurrence: US)
  Receive Date: 20210714
  Receipt Date: 20210720
  Transmission Date: 20211014
  Serious: Yes (Other)
  Sender: FDA-Public Use
  Company Number: US-SA-2021SA224520

PATIENT
  Age: 55 Year
  Sex: Female
  Weight: 95.24 kg

DRUGS (2)
  1. ZANTAC [Suspect]
     Active Substance: RANITIDINE HYDROCHLORIDE
     Indication: DYSPEPSIA
     Dosage: UNK
     Dates: start: 19960911, end: 201901
  2. RANITIDINE HYDROCHLORIDE. [Suspect]
     Active Substance: RANITIDINE HYDROCHLORIDE
     Indication: DYSPEPSIA
     Dosage: UNK
     Dates: start: 19960911, end: 201901

REACTIONS (3)
  - Thyroid cancer [Unknown]
  - Neoplasm malignant [Unknown]
  - Neuroendocrine carcinoma [Unknown]

NARRATIVE: CASE EVENT DATE: 20161101
